FAERS Safety Report 20302332 (Version 1)
Quarter: 2022Q1

REPORT INFORMATION
  Report Type: Spontaneous
  Country: US (occurrence: US)
  Receive Date: 20220106
  Receipt Date: 20220106
  Transmission Date: 20220423
  Serious: Yes (Other)
  Sender: FDA-Public Use
  Company Number: US-CIPLA LTD.-2021US08374

PATIENT

DRUGS (9)
  1. GABAPENTIN [Suspect]
     Active Substance: GABAPENTIN
     Indication: Mental disorder
     Dosage: 100 MILLIGRAM, BID (ONCE IN THE MORNING AND ONCE AT NIGHT)
     Route: 065
     Dates: start: 2021
  2. GABAPENTIN [Suspect]
     Active Substance: GABAPENTIN
     Indication: Herpes zoster
  3. GABAPENTIN [Suspect]
     Active Substance: GABAPENTIN
     Indication: Seizure
  4. GABAPENTIN [Suspect]
     Active Substance: GABAPENTIN
     Indication: Epilepsy
  5. GABAPENTIN [Suspect]
     Active Substance: GABAPENTIN
     Indication: Intracranial aneurysm
  6. ATORVASTATIN [Concomitant]
     Active Substance: ATORVASTATIN
     Indication: Hypercholesterolaemia
     Dosage: 20 MILLIGRAM, QD
     Route: 065
  7. PANTOPRAZOLE [Concomitant]
     Active Substance: PANTOPRAZOLE
     Indication: Gastrooesophageal reflux disease
     Dosage: 40 MILLIGRAM, BID (1 TABLET IN MORNING AND 1 IN THE EVENING)
     Route: 065
  8. TYLENOL [Concomitant]
     Active Substance: ACETAMINOPHEN
     Indication: Product used for unknown indication
     Dosage: UNK, QID (EVERY 6 HOURS I.E., AT 6 AM, 12 PM AND 6 PM)
     Route: 065
  9. DICYCLOMINE [Concomitant]
     Active Substance: DICYCLOMINE HYDROCHLORIDE
     Indication: Gastrointestinal pain
     Dosage: 10 MILLIGRAM, BID (TWICE A DAY WHEN NEEDED)
     Route: 065

REACTIONS (13)
  - Choking [Unknown]
  - Suicidal ideation [Unknown]
  - Off label use [Unknown]
  - Product use in unapproved indication [Unknown]
  - Wrong technique in product usage process [Unknown]
  - Anxiety [Unknown]
  - Vertigo [Unknown]
  - Dyskinesia [Unknown]
  - Headache [Not Recovered/Not Resolved]
  - Depression [Unknown]
  - Somnolence [Unknown]
  - Fatigue [Unknown]
  - Pain [Not Recovered/Not Resolved]

NARRATIVE: CASE EVENT DATE: 20210101
